FAERS Safety Report 6005343-6 (Version None)
Quarter: 2008Q4

REPORT INFORMATION
  Report Type: 
  Country: None (occurrence: None)
  Receive Date: 20081215
  Receipt Date: 20081201
  Transmission Date: 20090506
  Serious: Yes (Hospitalization, Other)
  Sender: FDA-Public Use
  Company Number: 2007US000463

PATIENT
  Age: 67 Year
  Sex: Male

DRUGS (39)
  1. PROGRAF [Suspect]
     Indication: LIVER TRANSPLANT
     Dosage: SEE IMAGE
     Route: 048
     Dates: start: 20020401
  2. PROGRAF [Suspect]
     Indication: LIVER TRANSPLANT
     Dosage: SEE IMAGE
     Route: 048
     Dates: start: 20030801
  3. PROGRAF [Suspect]
     Indication: LIVER TRANSPLANT
     Dosage: SEE IMAGE
     Route: 048
     Dates: start: 20030813
  4. PROGRAF [Suspect]
     Indication: LIVER TRANSPLANT
     Dosage: SEE IMAGE
     Route: 048
     Dates: start: 20030820
  5. PROGRAF [Suspect]
     Indication: LIVER TRANSPLANT
     Dosage: SEE IMAGE
     Route: 048
     Dates: start: 20050101
  6. PROGRAF [Suspect]
     Indication: LIVER TRANSPLANT
     Dosage: SEE IMAGE
     Route: 048
     Dates: start: 20061229
  7. LASIX [Suspect]
     Indication: DRUG USE FOR UNKNOWN INDICATION
     Dosage: 20 MG
  8. NORVASC [Concomitant]
  9. FISH OIL (FISH OIL) PILL [Concomitant]
  10. LOPRESSOR [Concomitant]
  11. VITAMINS (THIAMINE HYDROCHLORIDE, RETINOL, ASCORBIC ACID) [Concomitant]
  12. ALLOPURINOL [Concomitant]
  13. FUROSEMIDE [Concomitant]
  14. PREVACID [Concomitant]
  15. CLARITIN [Concomitant]
  16. RESTORIL [Concomitant]
  17. FLONASE (FLUTICASOPNE PROPIONATE) [Concomitant]
  18. FOLIC ACID [Concomitant]
  19. CALCIUM (ASCORBIC ACID) [Concomitant]
  20. VITAMIN E [Concomitant]
  21. ASCORBIC ACID [Concomitant]
  22. OMEGA-3 FATTY ACIDS (OMEGA3-FATTY ACIDS) [Concomitant]
  23. VITAMIN B COMPLEX CAP [Concomitant]
  24. AMLODIPINE [Concomitant]
  25. TEMAZEPAM [Concomitant]
  26. CELLCEPT [Concomitant]
  27. SOLU-MEDROL [Concomitant]
  28. PREDNISONE [Concomitant]
  29. OS-CAL (COLECALCIFEROL) [Concomitant]
  30. BACTRIM [Concomitant]
  31. VALTREX [Concomitant]
  32. SPORANOX [Concomitant]
  33. KEFLEX [Concomitant]
  34. POTASSIUM CHLORIDE [Concomitant]
  35. MAGNESIUM SULFATE [Concomitant]
  36. DETROL [Concomitant]
  37. DEPO-TESTOSTERONE [Concomitant]
  38. ARTHROTEC [Concomitant]
  39. FLOMAX (TAMUSLOSIN HYDROCHLORIDE) [Concomitant]

REACTIONS (17)
  - ALANINE AMINOTRANSFERASE INCREASED [None]
  - BLOOD CREATININE INCREASED [None]
  - BLOOD TRIGLYCERIDES INCREASED [None]
  - BRONCHITIS [None]
  - ERECTILE DYSFUNCTION [None]
  - GASTRIC INFECTION [None]
  - GASTROENTERITIS VIRAL [None]
  - HYPOGONADISM MALE [None]
  - LARGE INTESTINE PERFORATION [None]
  - MYOCARDIAL INFARCTION [None]
  - PROSTATE CANCER [None]
  - SMALL INTESTINAL OBSTRUCTION [None]
  - SUPRAVENTRICULAR TACHYCARDIA [None]
  - UMBILICAL HERNIA, OBSTRUCTIVE [None]
  - URINARY TRACT INFECTION [None]
  - VIRAL INFECTION [None]
  - WEIGHT INCREASED [None]
